FAERS Safety Report 8319171-X (Version None)
Quarter: 2012Q2

REPORT INFORMATION
  Report Type: 
  Country: None (occurrence: None)
  Receive Date: 20120427
  Receipt Date: 20120426
  Transmission Date: 20120825
  Serious: Yes (Other)
  Sender: FDA-Public Use
  Company Number: US-MERCK-1203USA01248

PATIENT
  Age: 54 Year
  Sex: Female
  Weight: 77 kg

DRUGS (2)
  1. ZOCOR [Suspect]
     Indication: BLOOD CHOLESTEROL
     Route: 048
     Dates: end: 20110401
  2. LAMOTRIGINE [Concomitant]
     Route: 065

REACTIONS (4)
  - TYPE 2 DIABETES MELLITUS [None]
  - HEART RATE IRREGULAR [None]
  - HALLUCINATION [None]
  - LIMB DISCOMFORT [None]
